FAERS Safety Report 5982083-0 (Version None)
Quarter: 2008Q4

REPORT INFORMATION
  Report Type: 
  Country: None (occurrence: None)
  Receive Date: 20081205
  Receipt Date: 20080226
  Transmission Date: 20090506
  Serious: No
  Sender: FDA-Public Use
  Company Number: US-AMGEN-KDL267142

PATIENT
  Sex: Female

DRUGS (1)
  1. ENBREL [Suspect]
     Indication: PSORIATIC ARTHROPATHY
     Dates: start: 20070613

REACTIONS (4)
  - CHEST DISCOMFORT [None]
  - FEELING HOT [None]
  - INFLUENZA [None]
  - OROPHARYNGEAL PAIN [None]
